FAERS Safety Report 11521441 (Version 1)
Quarter: 2015Q3

REPORT INFORMATION
  Report Type: Report from Study
  Country: US (occurrence: US)
  Receive Date: 20150918
  Receipt Date: 20150918
  Transmission Date: 20151125
  Serious: No
  Sender: FDA-Public Use
  Company Number: PHEH2015US016932

PATIENT
  Sex: Female

DRUGS (1)
  1. NEORAL [Suspect]
     Active Substance: CYCLOSPORINE
     Indication: NEPHROTIC SYNDROME
     Dosage: 375 MG, (TAKES 8 OF THE 25MG IN AM AND 7 OF THE 25MG IN PM)
     Route: 048
     Dates: start: 20131201

REACTIONS (1)
  - Product use issue [Not Recovered/Not Resolved]
